FAERS Safety Report 5987094-7 (Version None)
Quarter: 2008Q4

REPORT INFORMATION
  Report Type: 
  Country: None (occurrence: None)
  Receive Date: 20081209
  Receipt Date: 20081003
  Transmission Date: 20090506
  Serious: Yes (Other)
  Sender: FDA-Public Use
  Company Number: A0751456A

PATIENT
  Age: 34 Year
  Sex: Female

DRUGS (8)
  1. AVANDAMET [Suspect]
     Dosage: 4MG TWICE PER DAY
     Route: 048
     Dates: start: 20041130, end: 20050301
  2. AVANDIA [Suspect]
     Dosage: 4MG TWICE PER DAY
     Route: 048
     Dates: start: 20050801, end: 20060801
  3. METFORMIN HCL [Concomitant]
     Dates: start: 20050401
  4. REGULAR INSULIN [Concomitant]
     Dates: start: 20040101, end: 20050101
  5. GLUCOTROL [Concomitant]
     Dates: start: 20050106
  6. GLUCOTROL XL [Concomitant]
     Dates: start: 20050101
  7. LASIX [Concomitant]
     Dates: start: 20060701
  8. PROZAC [Concomitant]
     Dates: start: 19960101

REACTIONS (3)
  - OEDEMA [None]
  - PLEURAL EFFUSION [None]
  - PULMONARY OEDEMA [None]
